FAERS Safety Report 7281776-5 (Version None)
Quarter: 2011Q1

REPORT INFORMATION
  Report Type: 
  Country: None (occurrence: None)
  Receive Date: 20110208
  Receipt Date: 20100308
  Transmission Date: 20110831
  Serious: Yes (Other)
  Sender: FDA-Public Use
  Company Number: US-PFIZER INC-2010005703

PATIENT
  Sex: Male
  Weight: 99.773 kg

DRUGS (7)
  1. SIMVASTATIN [Concomitant]
  2. GLUCOPHAGE [Concomitant]
  3. SUTENT [Suspect]
     Dosage: 37.5 MG, 1X/DAY
     Route: 048
     Dates: start: 20091227
  4. ANZEMET [Concomitant]
  5. LISINOPRIL [Concomitant]
  6. METOPROLOL [Concomitant]
  7. SUTENT [Suspect]
     Indication: RENAL CELL CARCINOMA
     Dosage: 50 MG, 1X/DAY
     Route: 048
     Dates: start: 20091015

REACTIONS (1)
  - PANCREATITIS [None]
